FAERS Safety Report 7850306-9 (Version None)
Quarter: 2011Q4

REPORT INFORMATION
  Report Type: 
  Country: None (occurrence: None)
  Receive Date: 20111026
  Receipt Date: 20111018
  Transmission Date: 20120403
  Serious: Yes (Hospitalization, Other)
  Sender: FDA-Public Use
  Company Number: US-JNJFOC-20111009541

PATIENT
  Sex: Female
  Weight: 45.36 kg

DRUGS (5)
  1. RISPERDAL CONSTA [Suspect]
     Indication: PSYCHOTIC DISORDER
     Route: 030
     Dates: start: 20100101, end: 20110101
  2. HYDROCHLOROTHIAZIDE [Concomitant]
     Route: 065
  3. RISPERDAL [Suspect]
     Route: 048
     Dates: start: 20110101
  4. RISPERDAL [Suspect]
     Indication: PSYCHOTIC DISORDER
     Route: 048
     Dates: start: 20100101, end: 20100101
  5. ELAVIL [Concomitant]
     Route: 065

REACTIONS (6)
  - DRUG DOSE OMISSION [None]
  - PANIC ATTACK [None]
  - PARANOIA [None]
  - CONFUSIONAL STATE [None]
  - PSYCHOTIC DISORDER [None]
  - NEOPLASM MALIGNANT [None]
